FAERS Safety Report 20959252 (Version 2)
Quarter: 2022Q2

REPORT INFORMATION
  Report Type: Spontaneous
  Country: US (occurrence: None)
  Receive Date: 20220614
  Receipt Date: 20220617
  Transmission Date: 20220721
  Serious: Yes (Hospitalization, Other)
  Sender: FDA-Public Use
  Company Number: 2022A211255

PATIENT
  Age: 68 Year
  Sex: Female
  Weight: 86.2 kg

DRUGS (5)
  1. NEXIUM [Suspect]
     Active Substance: ESOMEPRAZOLE MAGNESIUM
     Indication: Hernia
     Dosage: 40 MG. DAILY
     Route: 048
     Dates: start: 2008
  2. ESOMEPRAZOLE MAGNESIUM [Suspect]
     Active Substance: ESOMEPRAZOLE MAGNESIUM
     Indication: Hernia
     Route: 048
     Dates: start: 2009
  3. FUROSEMIDE [Concomitant]
     Active Substance: FUROSEMIDE
     Indication: Cardiac disorder
  4. ATORVASTATIN [Concomitant]
     Active Substance: ATORVASTATIN
  5. VITAMIN D [Concomitant]
     Active Substance: VITAMIN D NOS

REACTIONS (7)
  - Vulval neoplasm [Recovered/Resolved]
  - Thrombosis [Recovered/Resolved]
  - Hypertension [Unknown]
  - Cardiac disorder [Unknown]
  - Oral mucosal blistering [Recovered/Resolved]
  - Drug ineffective [Recovered/Resolved]
  - Product use issue [Not Recovered/Not Resolved]

NARRATIVE: CASE EVENT DATE: 20080101
